FAERS Safety Report 9365671 (Version 1)
Quarter: 2013Q2

REPORT INFORMATION
  Report Type: Spontaneous
  Country: US (occurrence: None)
  Receive Date: 20130624
  Receipt Date: 20130624
  Transmission Date: 20140414
  Serious: Yes (Hospitalization)
  Sender: FDA-Public Use
  Company Number: None

PATIENT
  Age: 38 Year
  Sex: Female
  Weight: 86.9 kg

DRUGS (1)
  1. ENOXAPARIN [Suspect]

REACTIONS (3)
  - Hypertension [None]
  - Haemoglobin decreased [None]
  - Subcutaneous haematoma [None]
